FAERS Safety Report 7956365-7 (Version None)
Quarter: 2011Q4

REPORT INFORMATION
  Report Type: 
  Country: None (occurrence: None)
  Receive Date: 20111205
  Receipt Date: 20111203
  Transmission Date: 20120403
  Serious: Yes (Death, Life-Threatening, Hospitalization)
  Sender: FDA-Public Use
  Company Number: US-PFIZER INC-2007004506

PATIENT
  Sex: Male
  Weight: 55 kg

DRUGS (17)
  1. DRONABINOL [Concomitant]
     Indication: INCREASED APPETITE
     Route: 048
     Dates: start: 20051024
  2. INSULIN LISPRO [Concomitant]
     Indication: TYPE 2 DIABETES MELLITUS
     Route: 058
     Dates: start: 20020101
  3. SUNITINIB MALATE [Suspect]
     Indication: RENAL CELL CARCINOMA
     Dosage: 25 MG, 1X/DAY
     Route: 048
     Dates: start: 20051025, end: 20070111
  4. INSULIN GLARGINE [Concomitant]
     Indication: TYPE 2 DIABETES MELLITUS
     Route: 058
     Dates: start: 20050301
  5. OMEPRAZOLE [Concomitant]
     Indication: ULCER
     Route: 048
     Dates: start: 20061114
  6. MILK OF MAGNESIA TAB [Concomitant]
     Indication: ULCER
     Route: 048
     Dates: start: 20051122
  7. PANCRELIPASE [Concomitant]
     Indication: PANCREATIC INSUFFICIENCY
     Route: 048
     Dates: start: 20051218
  8. FLUDROCORTISONE ACETATE [Concomitant]
     Indication: ADRENAL INSUFFICIENCY
     Route: 048
     Dates: start: 20060720
  9. LISINOPRIL [Concomitant]
     Indication: MYOCARDIAL INFARCTION
     Route: 048
     Dates: start: 20061027
  10. OXYCONTIN [Concomitant]
     Indication: ABDOMINAL PAIN
     Route: 048
     Dates: start: 20060614, end: 20070109
  11. CREON [Concomitant]
     Indication: PANCREATIC INSUFFICIENCY
     Route: 048
     Dates: start: 20000101
  12. ZOFRAN [Concomitant]
     Indication: NAUSEA
     Route: 048
     Dates: start: 20051206
  13. HYDROCHLOROTHIAZIDE [Concomitant]
     Indication: HYPERTENSION
     Route: 048
     Dates: start: 20061027, end: 20070113
  14. KLOR-CON [Concomitant]
     Indication: MINERAL SUPPLEMENTATION
     Route: 048
     Dates: start: 20041101
  15. CALTRATE + D [Concomitant]
     Indication: SUPPLEMENTATION THERAPY
     Route: 048
     Dates: start: 20041101
  16. LEVOFLOXACIN [Concomitant]
     Indication: INFECTION PROPHYLAXIS
     Route: 048
     Dates: start: 20060720, end: 20070113
  17. PREDNISONE TAB [Concomitant]
     Indication: ADRENAL INSUFFICIENCY
     Route: 048
     Dates: start: 20051218

REACTIONS (11)
  - MENTAL STATUS CHANGES [None]
  - HYPOGLYCAEMIA [None]
  - PLATELET COUNT DECREASED [None]
  - DISSEMINATED INTRAVASCULAR COAGULATION [None]
  - RESPIRATORY FAILURE [None]
  - PULMONARY HAEMORRHAGE [None]
  - DISEASE PROGRESSION [None]
  - DEHYDRATION [None]
  - METASTATIC RENAL CELL CARCINOMA [None]
  - MYOCARDIAL INFARCTION [None]
  - HYPOTENSION [None]
